FAERS Safety Report 21795086 (Version 1)
Quarter: 2022Q4

REPORT INFORMATION
  Report Type: Report from Study
  Country: KR (occurrence: KR)
  Receive Date: 20221229
  Receipt Date: 20221229
  Transmission Date: 20230112
  Serious: Yes (Other)
  Sender: FDA-Public Use
  Company Number: KR-MYLANLABS-2022M1147465

PATIENT
  Sex: Female
  Weight: 57.3 kg

DRUGS (17)
  1. TRASTUZUMAB [Suspect]
     Active Substance: TRASTUZUMAB
     Indication: Breast cancer female
     Dosage: 112 MILLIGRAM, QD
     Route: 042
     Dates: start: 20200620, end: 20200620
  2. TRASTUZUMAB [Suspect]
     Active Substance: TRASTUZUMAB
     Dosage: 112 MILLIGRAM, QD
     Route: 042
     Dates: start: 20200627, end: 20200627
  3. TRASTUZUMAB [Suspect]
     Active Substance: TRASTUZUMAB
     Dosage: 338 MILLIGRAM, QD
     Route: 042
     Dates: start: 20200705, end: 20200705
  4. TRASTUZUMAB [Suspect]
     Active Substance: TRASTUZUMAB
     Dosage: 338 MILLIGRAM, QD
     Route: 042
     Dates: start: 20200725, end: 20200725
  5. TRASTUZUMAB [Suspect]
     Active Substance: TRASTUZUMAB
     Dosage: 338 MILLIGRAM, QD
     Route: 042
     Dates: start: 20200813, end: 20200813
  6. TRASTUZUMAB [Suspect]
     Active Substance: TRASTUZUMAB
     Dosage: 338 MILLIGRAM, QD
     Route: 042
     Dates: start: 20200923, end: 20200923
  7. DEXAMETHASONE [Concomitant]
     Active Substance: DEXAMETHASONE
     Indication: Prophylaxis
     Dosage: 5 MILLILITER, QD
     Route: 042
     Dates: start: 20200620, end: 20200704
  8. SODIUM CHLORIDE [Concomitant]
     Active Substance: SODIUM CHLORIDE
     Indication: Prophylaxis
     Dosage: 10 MILLILITER, QD
     Route: 042
     Dates: start: 20200620, end: 20200704
  9. THIAMINE HYDROCHLORIDE [Concomitant]
     Active Substance: THIAMINE HYDROCHLORIDE
     Indication: Prophylaxis
     Dosage: 10 MILLIGRAM, QD
     Route: 048
     Dates: start: 20200620, end: 20200705
  10. PYRIDOXINE [Concomitant]
     Active Substance: PYRIDOXINE
     Indication: Prophylaxis
     Dosage: 50 MILLIGRAM, QD
     Route: 048
     Dates: start: 20200620, end: 20200705
  11. CHLORPHENIRAMINE MALEATE [Concomitant]
     Active Substance: CHLORPHENIRAMINE MALEATE
     Indication: Prophylaxis
     Dosage: 2 MILLILITER, QD
     Route: 042
     Dates: start: 20200620, end: 20201125
  12. FAMOTIDINE [Concomitant]
     Active Substance: FAMOTIDINE
     Indication: Prophylaxis
     Dosage: 20 MILLIGRAM, QD
     Route: 048
     Dates: start: 20201005, end: 20201005
  13. FAMOTIDINE [Concomitant]
     Active Substance: FAMOTIDINE
     Dosage: 20 MILLIGRAM, QD
     Route: 048
     Dates: start: 20200620, end: 20200704
  14. ACETAMINOPHEN [Concomitant]
     Active Substance: ACETAMINOPHEN
     Indication: Prophylaxis
     Dosage: 650 MILLIGRAM, QD,MICROENCAPSULATED
     Route: 048
     Dates: start: 20200620, end: 20201125
  15. PACLITAXEL [Concomitant]
     Active Substance: PACLITAXEL
     Indication: Breast cancer
     Dosage: 125 MILLIGRAM, QD
     Route: 042
     Dates: start: 20200620, end: 20200627
  16. ARTEMISIA ARGYI [Concomitant]
     Indication: Prophylaxis
     Dosage: 60 MILLIGRAM, QD
     Route: 048
     Dates: start: 20200620, end: 20200705
  17. GABAPENTIN [Concomitant]
     Active Substance: GABAPENTIN
     Indication: Prophylaxis
     Dosage: 300 MILLIGRAM
     Route: 048
     Dates: start: 20200620, end: 20200705

REACTIONS (4)
  - Urinary retention [Recovered/Resolved]
  - Hordeolum [Recovered/Resolved]
  - Pollakiuria [Recovered/Resolved]
  - Dermatitis [Recovered/Resolved]

NARRATIVE: CASE EVENT DATE: 20200626
